FAERS Safety Report 17429674 (Version 2)
Quarter: 2021Q1

REPORT INFORMATION
  Report Type: Spontaneous
  Country: FR (occurrence: FR)
  Receive Date: 20200218
  Receipt Date: 20210216
  Transmission Date: 20210419
  Serious: Yes (Hospitalization, Other)
  Sender: FDA-Public Use
  Company Number: FR-SA-2020SA040285

PATIENT
  Age: 55 Year
  Sex: Male

DRUGS (2)
  1. INTERFERON ALFA?2A [Concomitant]
     Active Substance: INTERFERON ALFA-2A
     Indication: MALIGNANT MELANOMA
     Dosage: UNK
     Dates: start: 201511, end: 201705
  2. AUBAGIO [Suspect]
     Active Substance: TERIFLUNOMIDE
     Indication: RELAPSING-REMITTING MULTIPLE SCLEROSIS
     Dosage: UNK
     Route: 048
     Dates: start: 201504

REACTIONS (4)
  - Renal colic [Recovered/Resolved]
  - Calculus bladder [Recovered/Resolved]
  - Dysuria [Recovered/Resolved]
  - Calculus urinary [Recovered/Resolved]

NARRATIVE: CASE EVENT DATE: 201611
